FAERS Safety Report 7162082-6 (Version None)
Quarter: 2010Q4

REPORT INFORMATION
  Report Type: 
  Country: None (occurrence: None)
  Receive Date: 20101215
  Receipt Date: 20101208
  Transmission Date: 20110411
  Serious: Yes (Hospitalization, Other)
  Sender: FDA-Public Use
  Company Number: US-ROCHE-727294

PATIENT
  Sex: Female
  Weight: 113.4 kg

DRUGS (1)
  1. ACCUTANE [Suspect]
     Indication: ACNE
     Route: 048
     Dates: start: 20010620, end: 20020627

REACTIONS (7)
  - ABDOMINAL ABSCESS [None]
  - COLITIS ULCERATIVE [None]
  - DEPRESSION [None]
  - DIVERTICULAR PERFORATION [None]
  - GASTROINTESTINAL INJURY [None]
  - LARGE INTESTINE PERFORATION [None]
  - SUICIDAL IDEATION [None]
